FAERS Safety Report 19841722 (Version 2)
Quarter: 2021Q3

REPORT INFORMATION
  Report Type: Report from Study
  Country: DE (occurrence: DE)
  Receive Date: 20210916
  Receipt Date: 20210921
  Transmission Date: 20211014
  Serious: Yes (Hospitalization)
  Sender: FDA-Public Use
  Company Number: DE-EISAI MEDICAL RESEARCH-EC-2021-099535

PATIENT
  Age: 49 Year
  Sex: Female
  Weight: 72.2 kg

DRUGS (5)
  1. PEMBROLIZUMAB. [Suspect]
     Active Substance: PEMBROLIZUMAB
     Indication: COLORECTAL CANCER
     Route: 042
     Dates: start: 20210813, end: 20210813
  2. EVAKADIN [Concomitant]
     Dates: start: 201912
  3. DIPYRONE [Concomitant]
     Active Substance: DIPYRONE
     Dates: start: 202107
  4. LENVATINIB [Suspect]
     Active Substance: LENVATINIB
     Indication: COLORECTAL CANCER
     Route: 048
     Dates: start: 20210813, end: 20210825
  5. LENVATINIB [Suspect]
     Active Substance: LENVATINIB
     Route: 048
     Dates: start: 20210908

REACTIONS (1)
  - Hypertension [Recovering/Resolving]

NARRATIVE: CASE EVENT DATE: 20210825
